FAERS Safety Report 11366097 (Version 3)
Quarter: 2015Q3

REPORT INFORMATION
  Report Type: Spontaneous
  Country: US (occurrence: US)
  Receive Date: 20150811
  Receipt Date: 20150915
  Transmission Date: 20151125
  Serious: Yes (Hospitalization, Other)
  Sender: FDA-Public Use
  Company Number: US-GLAXOSMITHKLINE-US2015GSK112472

PATIENT
  Age: 80 Year
  Sex: Female
  Weight: 61 kg

DRUGS (1)
  1. IMITREX [Suspect]
     Active Substance: SUMATRIPTAN\SUMATRIPTAN SUCCINATE
     Indication: MIGRAINE
     Dosage: UNK, U
     Dates: start: 199511

REACTIONS (6)
  - Cardiac disorder [Unknown]
  - Coronary artery bypass [Recovered/Resolved]
  - Chest discomfort [Unknown]
  - Heart rate increased [Unknown]
  - Stent placement [Recovered/Resolved]
  - Vasoconstriction [Unknown]

NARRATIVE: CASE EVENT DATE: 1995
